FAERS Safety Report 25737577 (Version 1)
Quarter: 2025Q3

REPORT INFORMATION
  Report Type: Other
  Country: CA (occurrence: CA)
  Receive Date: 20250828
  Receipt Date: 20250828
  Transmission Date: 20251021
  Serious: Yes (Other)
  Sender: APOTEX
  Company Number: CA-PGRTD-E2B_07841658

PATIENT
  Age: 52 Year
  Sex: Female

DRUGS (3)
  1. LETROZOLE [Suspect]
     Active Substance: LETROZOLE
     Indication: Product used for unknown indication
     Route: 065
  2. VERZENIO [Suspect]
     Active Substance: ABEMACICLIB
     Indication: Product used for unknown indication
     Route: 048
  3. VERZENIO [Suspect]
     Active Substance: ABEMACICLIB
     Route: 065

REACTIONS (5)
  - White blood cell count increased [Recovering/Resolving]
  - Trigger finger [Recovering/Resolving]
  - Inflammation [Recovering/Resolving]
  - Neutrophil count decreased [Recovering/Resolving]
  - Arthralgia [Recovering/Resolving]
